FAERS Safety Report 15744438 (Version 6)
Quarter: 2021Q1

REPORT INFORMATION
  Report Type: Spontaneous
  Country: AT (occurrence: AT)
  Receive Date: 20181220
  Receipt Date: 20210330
  Transmission Date: 20210419
  Serious: Yes (Hospitalization, Other)
  Sender: FDA-Public Use
  Company Number: AT-AMGEN-AUTNI2018179569

PATIENT
  Age: 40 Year
  Sex: Female
  Weight: 60 kg

DRUGS (17)
  1. TRASTUZUMAB. [Suspect]
     Active Substance: TRASTUZUMAB
     Indication: HER2 POSITIVE BREAST CANCER
     Dosage: 3.6 MILLIGRAM/KILOGRAM, Q4WK
     Route: 042
     Dates: start: 20161114
  2. FEMARA [Suspect]
     Active Substance: LETROZOLE
     Indication: BREAST CANCER
     Dosage: 2.5 MILLIGRAM, QD
     Route: 048
     Dates: start: 20180426
  3. PERTUZUMAB. [Suspect]
     Active Substance: PERTUZUMAB
     Indication: HER2 POSITIVE BREAST CANCER
     Dosage: 420 MILLIGRAM, Q3WK
     Route: 042
     Dates: start: 20181122
  4. TRASTUZUMAB. [Suspect]
     Active Substance: TRASTUZUMAB
     Indication: BREAST CANCER
     Dosage: 600 MILLIGRAM, Q3WK
     Route: 041
     Dates: start: 20180503
  5. LEUPRORELIN [Suspect]
     Active Substance: LEUPROLIDE ACETATE
     Indication: HER2 POSITIVE BREAST CANCER
     Dosage: 11.25 MILLIGRAM, Q3MO
     Route: 058
     Dates: start: 201804
  6. ZOFRAN [Concomitant]
     Active Substance: ONDANSETRON HYDROCHLORIDE
     Dosage: UNK
     Route: 065
     Dates: start: 20161115
  7. FORTECORTIN [Concomitant]
     Active Substance: DEXAMETHASONE
     Dosage: UNK
     Route: 065
     Dates: start: 20170330
  8. PARKEMED [Concomitant]
     Active Substance: MEFENAMIC ACID
     Indication: DENTAL FISTULA
     Dosage: UNK
     Route: 065
     Dates: start: 20170315
  9. MEXALEN [Concomitant]
     Active Substance: ACETAMINOPHEN
     Indication: METASTASES TO CENTRAL NERVOUS SYSTEM
     Dosage: UNK
     Route: 065
     Dates: start: 20170609
  10. VENLAFAXINE [Concomitant]
     Active Substance: VENLAFAXINE HYDROCHLORIDE
     Indication: NIGHT SWEATS
     Dosage: UNK
     Dates: start: 20190228
  11. FEMARA [Suspect]
     Active Substance: LETROZOLE
     Indication: HER2 POSITIVE BREAST CANCER
  12. TRASTUZUMAB EMTANSINE [Suspect]
     Active Substance: ADO-TRASTUZUMAB EMTANSINE
     Indication: HER2 POSITIVE BREAST CANCER
     Dosage: 3.6 MILLIGRAM/KILOGRAM, Q4WK
     Route: 042
     Dates: start: 20161114
  13. PERTUZUMAB. [Suspect]
     Active Substance: PERTUZUMAB
     Indication: BREAST CANCER
     Dosage: 840 MILLIGRAM, Q3WK
     Route: 042
     Dates: start: 20181122
  14. EMEND [Concomitant]
     Active Substance: APREPITANT
     Dosage: UNK
     Route: 065
     Dates: start: 20161115
  15. PARKEMED [Concomitant]
     Active Substance: MEFENAMIC ACID
     Dosage: UNK
     Route: 065
     Dates: start: 20181113, end: 20181120
  16. XGEVA [Suspect]
     Active Substance: DENOSUMAB
     Indication: HER2 POSITIVE BREAST CANCER
     Dosage: 120 MILLIGRAM, QMO
     Route: 058
     Dates: start: 201611
  17. MIRANAX [Concomitant]
     Dosage: UNK
     Route: 065
     Dates: start: 20161115

REACTIONS (7)
  - Night sweats [Recovered/Resolved]
  - Chills [Recovered/Resolved]
  - Spinal pain [Recovered/Resolved]
  - Off label use [Unknown]
  - Vision blurred [Recovered/Resolved]
  - Dental fistula [Recovered/Resolved]
  - Spinal pain [Not Recovered/Not Resolved]

NARRATIVE: CASE EVENT DATE: 20181112
